FAERS Safety Report 12364883 (Version 3)
Quarter: 2016Q3

REPORT INFORMATION
  Report Type: Spontaneous
  Country: US (occurrence: US)
  Receive Date: 20160512
  Receipt Date: 20160930
  Transmission Date: 20161109
  Serious: Yes (Hospitalization)
  Sender: FDA-Public Use
  Company Number: US-JAZZ-2016-US-008448

PATIENT
  Age: 47 Year
  Sex: Female

DRUGS (1)
  1. XYREM [Suspect]
     Active Substance: SODIUM OXYBATE
     Indication: PRODUCT USED FOR UNKNOWN INDICATION
     Route: 048

REACTIONS (10)
  - Abnormal behaviour [Unknown]
  - Tachycardia [Unknown]
  - Confusional state [Recovered/Resolved]
  - Delusion [Recovered/Resolved]
  - Hypertension [Unknown]
  - Adverse drug reaction [Recovered/Resolved]
  - Agitation [Recovered/Resolved]
  - Insomnia [Recovering/Resolving]
  - Irritability [Recovered/Resolved]
  - Hallucination [Recovered/Resolved]

NARRATIVE: CASE EVENT DATE: 20160406
